FAERS Safety Report 4901924-9 (Version None)
Quarter: 2006Q1

REPORT INFORMATION
  Report Type: 
  Country: None (occurrence: None)
  Receive Date: 20060206
  Receipt Date: 20050909
  Transmission Date: 20060701
  Serious: Yes (Hospitalization, Other)
  Sender: FDA-Public Use
  Company Number: GB-NOVOPROD-246796

PATIENT
  Age: 61 Year
  Sex: Male
  Weight: 98 kg

DRUGS (7)
  1. LEVEMIR [Suspect]
     Indication: DIABETES MELLITUS
     Dosage: 50 IU, QD
     Route: 058
     Dates: start: 20050426
  2. QUINAPRIL [Concomitant]
     Dosage: 10 MG, QD
     Route: 048
     Dates: end: 20050822
  3. IRBESARTAN [Concomitant]
     Dosage: 150 MG, QD
     Route: 048
     Dates: start: 20030316
  4. BENDROFLUMETHIAZIDE [Concomitant]
     Dosage: 2.5 MG, QD
     Route: 048
     Dates: start: 20040626
  5. ASPIRIN [Concomitant]
     Dosage: 75 MG, QD
     Route: 048
  6. LANSOPRAZOLE [Concomitant]
     Dosage: 15 MG, QD
     Dates: start: 20021001
  7. BEZAFIBRATE [Concomitant]
     Dosage: 400 MG, QD
     Route: 048

REACTIONS (1)
  - MYOCARDIAL INFARCTION [None]
